FAERS Safety Report 17408188 (Version 1)
Quarter: 2020Q1

REPORT INFORMATION
  Report Type: Spontaneous
  Country: US (occurrence: US)
  Receive Date: 20200128
  Receipt Date: 20200128
  Transmission Date: 20200409
  Serious: No
  Sender: FDA-Public Use
  Company Number: None

PATIENT
  Age: 79 Year
  Sex: Female
  Weight: 63.5 kg

DRUGS (2)
  1. LEVOFLOXACIN 500MG TAB CAMB [Suspect]
     Active Substance: LEVOFLOXACIN
     Indication: SINUSITIS
     Dosage: ?          QUANTITY:500 MG MILLIGRAM(S);?
     Route: 048
     Dates: start: 20191111, end: 20191117
  2. DAILY MULTIVITAMIN [Concomitant]
     Active Substance: VITAMINS

REACTIONS (6)
  - Cardiac disorder [None]
  - Joint range of motion decreased [None]
  - Dyspnoea [None]
  - Pain [None]
  - Palpitations [None]
  - Musculoskeletal pain [None]

NARRATIVE: CASE EVENT DATE: 20191111
